FAERS Safety Report 14382788 (Version 5)
Quarter: 2018Q1

REPORT INFORMATION
  Report Type: Spontaneous
  Country: US (occurrence: US)
  Receive Date: 20180113
  Receipt Date: 20180228
  Transmission Date: 20180509
  Serious: No
  Sender: FDA-Public Use
  Company Number: PHEH2018US001591

PATIENT
  Sex: Female
  Weight: 94.79 kg

DRUGS (2)
  1. METFORMIN [Concomitant]
     Active Substance: METFORMIN HYDROCHLORIDE
     Indication: BLOOD INSULIN
     Dosage: UNK
     Route: 065
  2. ESTRADIOL. [Suspect]
     Active Substance: ESTRADIOL
     Indication: MENOPAUSE
     Dosage: 1 DF, QW
     Route: 062
     Dates: start: 201703

REACTIONS (5)
  - Feeling abnormal [Not Recovered/Not Resolved]
  - Product adhesion issue [Unknown]
  - Fall [Unknown]
  - Wrong technique in product usage process [Not Recovered/Not Resolved]
  - Skin exfoliation [Unknown]
